FAERS Safety Report 7652385-0 (Version None)
Quarter: 2011Q3

REPORT INFORMATION
  Report Type: 
  Country: None (occurrence: None)
  Receive Date: 20110803
  Receipt Date: 20110801
  Transmission Date: 20111222
  Serious: Yes (Disabling, Other)
  Sender: FDA-Public Use
  Company Number: US-BAYER-200932727NA

PATIENT
  Age: 59 Year
  Sex: Male

DRUGS (14)
  1. MYCOPHENOLIC ACID [Concomitant]
  2. OPTIMARK [Suspect]
     Indication: PRODUCT USED FOR UNKNOWN INDICATION
  3. PROHANCE [Suspect]
     Indication: PRODUCT USED FOR UNKNOWN INDICATION
  4. SIROLIMUS [Concomitant]
  5. DIETARY SUPPLEMENTS [Concomitant]
     Indication: THROMBECTOMY
  6. LABETALOL HCL [Concomitant]
  7. EPOGEN [Concomitant]
  8. ENZYME PREPARATIONS [Concomitant]
     Indication: PREOPERATIVE CARE
  9. PREDNISONE [Concomitant]
  10. MAGNEVIST [Suspect]
     Indication: PRODUCT USED FOR UNKNOWN INDICATION
  11. OMNISCAN [Suspect]
     Indication: PRODUCT USED FOR UNKNOWN INDICATION
  12. MULTIHANCE [Suspect]
     Indication: PRODUCT USED FOR UNKNOWN INDICATION
  13. FERROUS SULFATE TAB [Concomitant]
  14. SYNTHROID [Concomitant]

REACTIONS (8)
  - SKIN PLAQUE [None]
  - NEPHROGENIC SYSTEMIC FIBROSIS [None]
  - PROGRESSIVE MASSIVE FIBROSIS [None]
  - PAIN [None]
  - DEFORMITY [None]
  - GENERAL PHYSICAL HEALTH DETERIORATION [None]
  - SKIN INDURATION [None]
  - ARTHRALGIA [None]
